FAERS Safety Report 24708236 (Version 1)
Quarter: 2024Q4

REPORT INFORMATION
  Report Type: Spontaneous
  Country: CA (occurrence: CA)
  Receive Date: 20241207
  Receipt Date: 20241207
  Transmission Date: 20250114
  Serious: Yes (Hospitalization)
  Sender: ROCHE
  Company Number: CA-ROCHE-10000146593

PATIENT
  Age: 30 Year
  Sex: Female

DRUGS (1)
  1. ACTEMRA [Suspect]
     Active Substance: TOCILIZUMAB
     Indication: Product used for unknown indication
     Dosage: DOSAGE FORM: SOLUTION INTRAVENOUS
     Route: 065

REACTIONS (2)
  - Hepatic enzyme increased [Unknown]
  - Urosepsis [Unknown]
